FAERS Safety Report 22275125 (Version 3)
Quarter: 2024Q1

REPORT INFORMATION
  Report Type: Spontaneous
  Country: NO (occurrence: NO)
  Receive Date: 20230502
  Receipt Date: 20240110
  Transmission Date: 20240410
  Serious: No
  Sender: FDA-Public Use
  Company Number: NO-MYLANLABS-2023M1042301

PATIENT
  Age: 23 Year
  Sex: Female

DRUGS (1)
  1. EPIPEN [Suspect]
     Active Substance: EPINEPHRINE
     Indication: Product used for unknown indication
     Dosage: 300 MICROGRAM
     Route: 065
     Dates: start: 20230417, end: 20230417

REACTIONS (1)
  - Device failure [Unknown]
